FAERS Safety Report 5542077-6 (Version None)
Quarter: 2007Q4

REPORT INFORMATION
  Report Type: 
  Country: None (occurrence: None)
  Receive Date: 20071210
  Receipt Date: 20061215
  Transmission Date: 20080405
  Serious: No
  Sender: FDA-Public Use
  Company Number: US-AMGEN-US197496

PATIENT
  Sex: Female
  Weight: 69 kg

DRUGS (15)
  1. ENBREL [Suspect]
     Indication: RHEUMATOID ARTHRITIS
     Route: 058
     Dates: start: 19981101
  2. METHOTREXATE [Concomitant]
     Dates: start: 19950101
  3. EVISTA [Concomitant]
     Route: 065
  4. NORVASC [Concomitant]
     Route: 065
  5. FOLIC ACID [Concomitant]
     Route: 065
  6. TYLENOL W/ CODEINE [Concomitant]
     Route: 065
  7. NASONEX [Concomitant]
     Route: 065
  8. SENOKOT [Concomitant]
     Route: 065
  9. ASPIRIN [Concomitant]
     Route: 065
  10. PROZAC [Concomitant]
     Route: 065
  11. LEVOXYL [Concomitant]
     Route: 065
  12. ZOCOR [Concomitant]
     Route: 065
  13. PREDNISONE [Concomitant]
     Route: 065
  14. DIOVAN [Concomitant]
     Route: 065
  15. AVANDIA [Concomitant]
     Route: 065

REACTIONS (1)
  - INJECTION SITE PAIN [None]
